FAERS Safety Report 11193779 (Version 1)
Quarter: 2015Q2

REPORT INFORMATION
  Report Type: Spontaneous
  Country: US (occurrence: US)
  Receive Date: 20150616
  Receipt Date: 20150616
  Transmission Date: 20150821
  Serious: Yes (Other)
  Sender: FDA-Public Use
  Company Number: US-GLAXOSMITHKLINE-US2015GSK083659

PATIENT
  Sex: Female

DRUGS (2)
  1. LAMICTAL [Suspect]
     Active Substance: LAMOTRIGINE
     Indication: BIPOLAR DISORDER
     Dosage: UNK
     Dates: start: 2014
  2. LAMICTAL [Suspect]
     Active Substance: LAMOTRIGINE
     Indication: ANXIETY

REACTIONS (7)
  - Postpartum depression [Unknown]
  - Abortion spontaneous [Unknown]
  - Depression [Unknown]
  - Exposure during pregnancy [Unknown]
  - Twin pregnancy [Unknown]
  - Drug ineffective [Unknown]
  - Post-traumatic stress disorder [Unknown]
